FAERS Safety Report 16769971 (Version 1)
Quarter: 2019Q3

REPORT INFORMATION
  Report Type: Other
  Country: US (occurrence: US)
  Receive Date: 20190904
  Receipt Date: 20190904
  Transmission Date: 20191005
  Serious: Yes (Other)
  Sender: FDA-Public Use
  Company Number: US-GRANULES INDIA LIMITED-2073986

PATIENT
  Age: 44 Year
  Sex: Female

DRUGS (2)
  1. GABAPENTIN CAPSULES USP, 100 MG, 300 MG AND 400 MG [Suspect]
     Active Substance: GABAPENTIN
     Indication: PRODUCT USED FOR UNKNOWN INDICATION
     Route: 065
  2. NEFAZODONE [Interacting]
     Active Substance: NEFAZODONE
     Route: 065

REACTIONS (9)
  - Drug interaction [Unknown]
  - Tachycardia [Unknown]
  - Intentional overdose [Unknown]
  - Somnolence [Unknown]
  - Hypotension [Unknown]
  - Toxicity to various agents [Unknown]
  - Lethargy [Recovered/Resolved]
  - Mental status changes [Recovered/Resolved]
  - Conduction disorder [Unknown]
